FAERS Safety Report 22184175 (Version 1)
Quarter: 2023Q2

REPORT INFORMATION
  Report Type: Spontaneous
  Country: MY (occurrence: MY)
  Receive Date: 20230407
  Receipt Date: 20230407
  Transmission Date: 20230722
  Serious: Yes (Other)
  Sender: FDA-Public Use
  Company Number: MY-002147023-NVSC2023MY078685

PATIENT
  Age: 60 Year
  Sex: Male

DRUGS (1)
  1. BROLUCIZUMAB [Suspect]
     Active Substance: BROLUCIZUMAB
     Indication: Polypoidal choroidal vasculopathy
     Dosage: UNK
     Route: 065

REACTIONS (4)
  - Vitritis [Unknown]
  - Vitreous floaters [Unknown]
  - Vision blurred [Unknown]
  - Product use in unapproved indication [Unknown]
